FAERS Safety Report 5013041-0 (Version None)
Quarter: 2006Q2

REPORT INFORMATION
  Report Type: 
  Country: None (occurrence: None)
  Receive Date: 20060530
  Receipt Date: 20060207
  Transmission Date: 20061013
  Serious: No
  Sender: FDA-Public Use
  Company Number: US-GLAXOSMITHKLINE-A0592681A

PATIENT
  Age: 32 Year
  Sex: Female

DRUGS (2)
  1. WELLBUTRIN XL [Suspect]
     Indication: DEPRESSION
     Dosage: 300MG PER DAY
     Route: 048
     Dates: start: 20060101
  2. SYNTHROID [Concomitant]

REACTIONS (5)
  - ANXIETY [None]
  - DEPRESSED MOOD [None]
  - DIZZINESS [None]
  - IRRITABILITY [None]
  - OBSESSIVE THOUGHTS [None]
